FAERS Safety Report 6500606-X (Version None)
Quarter: 2009Q4

REPORT INFORMATION
  Report Type: 
  Country: None (occurrence: None)
  Receive Date: 20091216
  Receipt Date: 20081201
  Transmission Date: 20100525
  Serious: No
  Sender: FDA-Public Use
  Company Number: A0758690A

PATIENT
  Age: 68 Year
  Sex: Female

DRUGS (2)
  1. COMMIT [Suspect]
     Dates: start: 20081118
  2. NICODERM CQ [Suspect]
     Dates: start: 20081107, end: 20081218

REACTIONS (4)
  - ANXIETY [None]
  - APPLICATION SITE RASH [None]
  - PRURITUS [None]
  - WITHDRAWAL SYNDROME [None]
